FAERS Safety Report 7296689-2 (Version None)
Quarter: 2011Q1

REPORT INFORMATION
  Report Type: 
  Country: None (occurrence: None)
  Receive Date: 20110216
  Receipt Date: 20110124
  Transmission Date: 20110831
  Serious: No
  Sender: FDA-Public Use
  Company Number: US-B.I. PHARMACEUTICALS,INC./RIDGEFIELD-2010-BP-15151BP

PATIENT
  Sex: Male

DRUGS (11)
  1. PRADAXA [Suspect]
     Indication: ANTICOAGULANT THERAPY
  2. BENICAR [Concomitant]
     Indication: HYPERTENSION
  3. COREG [Concomitant]
     Indication: HYPERTENSION
  4. FEXOFENADINE [Concomitant]
     Indication: SINUS DISORDER
  5. LOVASA [Concomitant]
     Indication: PROPHYLAXIS
  6. PRADAXA [Suspect]
     Indication: ATRIAL FIBRILLATION
     Dosage: 300 MG
     Route: 048
     Dates: start: 20101201
  7. ASPIRIN [Concomitant]
     Indication: PROPHYLAXIS
  8. ZINC [Concomitant]
     Indication: PROPHYLAXIS
  9. MULTAQ [Concomitant]
     Indication: ATRIAL FIBRILLATION
  10. PLAVIX [Concomitant]
     Indication: ANTICOAGULANT THERAPY
  11. MULTIVITAMIN [Concomitant]
     Indication: PROPHYLAXIS

REACTIONS (4)
  - MUSCLE SPASMS [None]
  - PRURITUS [None]
  - POLLAKIURIA [None]
  - VISION BLURRED [None]
